FAERS Safety Report 21762742 (Version 1)
Quarter: 2022Q4

REPORT INFORMATION
  Report Type: Spontaneous
  Country: US (occurrence: US)
  Receive Date: 20221221
  Receipt Date: 20221221
  Transmission Date: 20230113
  Serious: No
  Sender: FDA-Public Use
  Company Number: US-INCYTE CORPORATION-2022IN012218

PATIENT

DRUGS (1)
  1. JAKAFI [Suspect]
     Active Substance: RUXOLITINIB
     Indication: Myeloproliferative neoplasm
     Dosage: 10 MILLIGRAM, 10MG ORAL TWICE DAILY ON MONDAYS AND THURSDAYS. 10MG ORAL ONCE DAILY ALL OTHER DAYS
     Route: 048

REACTIONS (3)
  - Onychoclasis [Unknown]
  - Nail disorder [Unknown]
  - Off label use [Unknown]
